FAERS Safety Report 18073235 (Version 9)
Quarter: 2021Q1

REPORT INFORMATION
  Report Type: Report from Study
  Country: BR (occurrence: BR)
  Receive Date: 20200727
  Receipt Date: 20210224
  Transmission Date: 20210419
  Serious: Yes (Hospitalization, Other)
  Sender: FDA-Public Use
  Company Number: NVSC2020BR186493

PATIENT
  Age: 77 Year
  Sex: Male
  Weight: 62 kg

DRUGS (4)
  1. VOTRIENT [Suspect]
     Active Substance: PAZOPANIB HYDROCHLORIDE
     Indication: RENAL CANCER METASTATIC
     Dosage: 2 DF, QD
     Route: 065
     Dates: start: 202002
  2. VOTRIENT [Suspect]
     Active Substance: PAZOPANIB HYDROCHLORIDE
     Indication: METASTATIC RENAL CELL CARCINOMA
     Dosage: 400 MG, BID  (2 TABLETS PER DAY)
     Route: 065
     Dates: start: 20200213
  3. PURAN [Concomitant]
     Active Substance: LEVOTHYROXINE SODIUM
     Indication: THYROID DISORDER
     Dosage: UNK
     Route: 065
  4. VOTRIENT [Suspect]
     Active Substance: PAZOPANIB HYDROCHLORIDE
     Indication: RENAL NEOPLASM

REACTIONS (33)
  - Hypoaesthesia oral [Not Recovered/Not Resolved]
  - Vomiting [Recovered/Resolved]
  - Vomiting [Not Recovered/Not Resolved]
  - Motion sickness [Recovered/Resolved]
  - Blood glucose decreased [Recovered/Resolved]
  - Malaise [Recovered/Resolved]
  - Underweight [Recovering/Resolving]
  - Cough [Not Recovered/Not Resolved]
  - Product dose omission issue [Unknown]
  - Thyroid disorder [Recovering/Resolving]
  - Memory impairment [Recovered/Resolved]
  - Vomiting [Recovered/Resolved]
  - Decreased appetite [Not Recovered/Not Resolved]
  - Retching [Recovering/Resolving]
  - Nausea [Recovering/Resolving]
  - Hypoacusis [Unknown]
  - Hallucination [Recovered/Resolved]
  - Malaise [Unknown]
  - Limb discomfort [Unknown]
  - Prosopagnosia [Recovered/Resolved]
  - Hypoaesthesia [Not Recovered/Not Resolved]
  - Dyspepsia [Recovered/Resolved]
  - Asthenia [Not Recovered/Not Resolved]
  - Cerebrovascular accident [Unknown]
  - Cachexia [Not Recovered/Not Resolved]
  - Nervousness [Not Recovered/Not Resolved]
  - Aphasia [Recovered/Resolved]
  - Diarrhoea [Not Recovered/Not Resolved]
  - Gait inability [Not Recovered/Not Resolved]
  - Vomiting [Recovered/Resolved]
  - Dyspepsia [Not Recovered/Not Resolved]
  - Head discomfort [Not Recovered/Not Resolved]
  - Inappropriate schedule of product administration [Unknown]

NARRATIVE: CASE EVENT DATE: 202002
